FAERS Safety Report 12635110 (Version 1)
Quarter: 2016Q3

REPORT INFORMATION
  Report Type: Spontaneous
  Country: TR (occurrence: TR)
  Receive Date: 20160809
  Receipt Date: 20160809
  Transmission Date: 20161109
  Serious: Yes (Other)
  Sender: FDA-Public Use
  Company Number: ALCN2016TR005220

PATIENT
  Age: 14 Year
  Sex: Female

DRUGS (10)
  1. EYESTIL [Suspect]
     Active Substance: HYALURONATE SODIUM
     Indication: CONJUNCTIVITIS
     Dosage: UNK
     Route: 047
  2. AMOXICILLIN CLAVULANIC ACID [Concomitant]
     Active Substance: AMOXICILLIN\CLAVULANIC ACID
     Indication: TONSILLITIS
  3. MAXIDEX [Suspect]
     Active Substance: DEXAMETHASONE
     Indication: CONJUNCTIVITIS
     Dosage: UNK
     Route: 047
  4. MAXIDEX [Suspect]
     Active Substance: DEXAMETHASONE
     Indication: CORNEAL DEFECT
  5. EYESTIL [Suspect]
     Active Substance: HYALURONATE SODIUM
     Indication: CORNEAL DEFECT
  6. MAXIDEX [Suspect]
     Active Substance: DEXAMETHASONE
     Indication: CORNEAL DEFECT
  7. MAXIDEX [Suspect]
     Active Substance: DEXAMETHASONE
     Indication: CONJUNCTIVITIS
     Dosage: UNK
     Route: 047
  8. AMOXICILLIN CLAVULANIC ACID [Concomitant]
     Active Substance: AMOXICILLIN\CLAVULANIC ACID
     Indication: PNEUMONIA
     Dosage: UNK
     Route: 065
  9. VIGAMOX [Suspect]
     Active Substance: MOXIFLOXACIN HYDROCHLORIDE
     Indication: CONJUNCTIVITIS
     Dosage: UNK
     Route: 047
  10. VIGAMOX [Suspect]
     Active Substance: MOXIFLOXACIN HYDROCHLORIDE
     Indication: CORNEAL DEFECT

REACTIONS (5)
  - Corneal opacity [Unknown]
  - Conjunctivitis [None]
  - Persistent corneal epithelial defect [None]
  - Madarosis [Unknown]
  - Drug ineffective [Unknown]
